FAERS Safety Report 10380318 (Version 1)
Quarter: 2014Q3

REPORT INFORMATION
  Report Type: Spontaneous
  Country: US (occurrence: None)
  Receive Date: 20140812
  Receipt Date: 20140812
  Transmission Date: 20150326
  Serious: Yes (Other)
  Sender: FDA-Public Use
  Company Number: None

PATIENT
  Age: 76 Year
  Sex: Male
  Weight: 86.18 kg

DRUGS (1)
  1. AUGMENTIN [Suspect]
     Active Substance: AMOXICILLIN\CLAVULANATE POTASSIUM
     Indication: ABDOMINAL INFECTION
     Dosage: 1 PILL
     Dates: start: 20140601, end: 20140811

REACTIONS (2)
  - Product quality issue [None]
  - Tooth discolouration [None]

NARRATIVE: CASE EVENT DATE: 20140811
